FAERS Safety Report 4802876-2 (Version None)
Quarter: 2005Q4

REPORT INFORMATION
  Report Type: 
  Country: None (occurrence: None)
  Receive Date: 20051019
  Receipt Date: 20050930
  Transmission Date: 20060501
  Serious: Yes (Hospitalization)
  Sender: FDA-Public Use
  Company Number: US-BRISTOL-MYERS SQUIBB COMPANY-13129127

PATIENT
  Age: 71 Year
  Sex: Female

DRUGS (3)
  1. ERBITUX [Suspect]
     Indication: LUNG CANCER METASTATIC
     Route: 042
     Dates: start: 20050817, end: 20050817
  2. CARBOPLATIN [Suspect]
     Indication: LUNG CANCER METASTATIC
     Route: 042
     Dates: start: 20050817, end: 20050817
  3. GEMZAR [Suspect]
     Indication: LUNG CANCER METASTATIC
     Route: 042
     Dates: start: 20050817, end: 20050817

REACTIONS (1)
  - HYPOCALCAEMIA [None]
